FAERS Safety Report 7260862-X (Version None)
Quarter: 2011Q1

REPORT INFORMATION
  Report Type: 
  Country: None (occurrence: None)
  Receive Date: 20110130
  Receipt Date: 20101123
  Transmission Date: 20110831
  Serious: No
  Sender: FDA-Public Use
  Company Number: US-ABBOTT-10P-163-0687298-00

PATIENT
  Sex: Male
  Weight: 85.352 kg

DRUGS (4)
  1. FLOMAX [Suspect]
     Indication: PROSTATOMEGALY
     Dosage: DARK BLUE COLOR/UNKNOWN STRENGTH
     Route: 048
     Dates: start: 20090101, end: 20101101
  2. SINEMET CR [Concomitant]
     Indication: PARKINSON'S DISEASE
     Dosage: 25/100 QD
     Route: 048
  3. CARBIDOPA AND LEVODOPA [Concomitant]
     Indication: PARKINSON'S DISEASE
     Dosage: 25/100 X 9 QD
     Route: 048
  4. HUMIRA [Suspect]
     Indication: PSORIATIC ARTHROPATHY
     Route: 058
     Dates: start: 20070101

REACTIONS (2)
  - BLOOD PRESSURE FLUCTUATION [None]
  - ORTHOSTATIC HYPOTENSION [None]
